FAERS Safety Report 12660380 (Version 1)
Quarter: 2016Q3

REPORT INFORMATION
  Report Type: Report from Study
  Country: CA (occurrence: CA)
  Receive Date: 20160817
  Receipt Date: 20160817
  Transmission Date: 20161109
  Serious: Yes (Death, Other)
  Sender: FDA-Public Use
  Company Number: PHHY2014CA007576

PATIENT
  Age: 80 Year
  Sex: Female

DRUGS (4)
  1. SANDOSTATIN LAR DEPOT [Suspect]
     Active Substance: OCTREOTIDE ACETATE
     Indication: HEPATIC NEOPLASM
     Dosage: 30 MG, QMO
     Route: 030
     Dates: start: 20130627, end: 20131224
  2. SANDOSTATIN LAR DEPOT [Suspect]
     Active Substance: OCTREOTIDE ACETATE
     Dosage: 30 MG, QMO
     Route: 030
  3. SANDOSTATIN LAR DEPOT [Suspect]
     Active Substance: OCTREOTIDE ACETATE
     Dosage: 40 MG, QMO
     Route: 030
     Dates: end: 20160715
  4. INSULIN [Concomitant]
     Active Substance: INSULIN NOS
     Indication: TYPE 2 DIABETES MELLITUS
     Dosage: 40 DF, QD (40 UNITS PER DAY)
     Route: 065

REACTIONS (11)
  - Abdominal pain [Unknown]
  - Metastases to liver [Unknown]
  - Blood pressure diastolic decreased [Unknown]
  - Drug ineffective [Unknown]
  - Blood pressure systolic increased [Unknown]
  - Abdominal pain upper [Unknown]
  - Vomiting [Unknown]
  - Neoplasm malignant [Fatal]
  - Malignant neoplasm progression [Unknown]
  - Chills [Unknown]
  - Nausea [Unknown]

NARRATIVE: CASE EVENT DATE: 20150129
